FAERS Safety Report 23552528 (Version 1)
Quarter: 2024Q1

REPORT INFORMATION
  Report Type: Report from Study
  Country: US (occurrence: US)
  Receive Date: 20240222
  Receipt Date: 20240222
  Transmission Date: 20240409
  Serious: Yes (Other)
  Sender: FDA-Public Use
  Company Number: US-PAREXEL-2021-KAM-US003448

PATIENT
  Sex: Female

DRUGS (2)
  1. GLASSIA [Suspect]
     Active Substance: .ALPHA.1-PROTEINASE INHIBITOR HUMAN
     Indication: Prophylaxis
     Dosage: UNK, 1/WEEK
     Route: 050
     Dates: start: 20221018
  2. GLASSIA [Suspect]
     Active Substance: .ALPHA.1-PROTEINASE INHIBITOR HUMAN
     Indication: Prophylaxis
     Dosage: UNK, 1/WEEK
     Route: 050
     Dates: start: 20221018

REACTIONS (1)
  - Pneumonia [Recovering/Resolving]
